FAERS Safety Report 23260928 (Version 1)
Quarter: 2023Q4

REPORT INFORMATION
  Report Type: Spontaneous
  Country: US (occurrence: US)
  Receive Date: 20231205
  Receipt Date: 20231205
  Transmission Date: 20240110
  Serious: No
  Sender: FDA-Public Use
  Company Number: US-CELLTRION INC.-2023US002793

PATIENT

DRUGS (1)
  1. TRUXIMA [Suspect]
     Active Substance: RITUXIMAB-ABBS
     Indication: Proteinuria
     Dosage: R 1000MG DAY 0 AND 15, TWO DOSES
     Dates: start: 20230202

REACTIONS (2)
  - Proteinuria [Unknown]
  - Off label use [Unknown]
